FAERS Safety Report 9311141 (Version 1)
Quarter: 2013Q1

REPORT INFORMATION
  Report Type: Spontaneous
  Country: AU (occurrence: None)
  Receive Date: 20130307
  Receipt Date: 20130307
  Transmission Date: 20140127
  Serious: Yes (Other)
  Sender: FDA-Public Use
  Company Number: 2012-8338

PATIENT
  Age: 45 Year
  Sex: Female

DRUGS (1)
  1. DYSPORT  (BOTULINUM  TOXIN  TYPE  A)  (BOTULINUM  TOXIN  TYPE  A) [Suspect]
     Indication: SKIN WRINKLING
     Dosage: 30 UNITS (30 UNITS 1 IN 1 CYCLE (S), INTRAMUSCULAR
     Dates: start: 20121215, end: 20121215

REACTIONS (12)
  - Dizziness [None]
  - Lethargy [None]
  - Vertigo [None]
  - Nausea [None]
  - Abdominal pain upper [None]
  - Dry mouth [None]
  - Rhinalgia [None]
  - Headache [None]
  - Neck pain [None]
  - Muscular weakness [None]
  - Headache [None]
  - Asthenia [None]
